FAERS Safety Report 4930345-8 (Version None)
Quarter: 2006Q1

REPORT INFORMATION
  Report Type: 
  Country: None (occurrence: None)
  Receive Date: 20060118
  Receipt Date: 20050621
  Transmission Date: 20060701
  Serious: No
  Sender: FDA-Public Use
  Company Number: 2005001178

PATIENT
  Sex: Male

DRUGS (8)
  1. TARCEVA [Suspect]
     Indication: NON-SMALL CELL LUNG CANCER
     Dosage: 150 MG (QD), ORAL
     Route: 048
     Dates: start: 20050618
  2. LIPITOR [Concomitant]
  3. SINGULAIR [Concomitant]
  4. ATENOLOL [Concomitant]
  5. BENZONATATE [Concomitant]
  6. ADVAIR DISKUS (SERETIDE MITE) [Concomitant]
  7. SPIREVA [Concomitant]
  8. ALBUTEROL [Concomitant]

REACTIONS (1)
  - CHILLS [None]
